FAERS Safety Report 4591045-X (Version None)
Quarter: 2005Q1

REPORT INFORMATION
  Report Type: 
  Country: None (occurrence: None)
  Receive Date: 20050222
  Receipt Date: 20050222
  Transmission Date: 20050727
  Serious: Yes (Hospitalization)
  Sender: FDA-Public Use
  Company Number: None

PATIENT
  Age: 19 Year
  Sex: Male
  Weight: 68 kg

DRUGS (2)
  1. PROZAC [Suspect]
     Indication: DEPRESSION
     Dosage: 40 MG DAILY ORAL
     Route: 048
     Dates: start: 20040201, end: 20050219
  2. DEPAKOTE [Suspect]
     Indication: BIPOLAR DISORDER
     Dosage: ORAL
     Route: 048
     Dates: start: 20050214, end: 20050219

REACTIONS (7)
  - AGITATION [None]
  - FATIGUE [None]
  - HEADACHE [None]
  - IRRITABILITY [None]
  - LETHARGY [None]
  - PRURITUS [None]
  - SEROTONIN SYNDROME [None]
